FAERS Safety Report 5801457-1 (Version None)
Quarter: 2008Q3

REPORT INFORMATION
  Report Type: 
  Country: None (occurrence: None)
  Receive Date: 20080703
  Receipt Date: 20080703
  Transmission Date: 20090109
  Serious: Yes (Life-Threatening, Hospitalization, Disabling)
  Sender: FDA-Public Use
  Company Number: None

PATIENT
  Age: 36 Year
  Sex: Female
  Weight: 95.2554 kg

DRUGS (2)
  1. YAZ [Suspect]
     Indication: CONTRACEPTION
     Dosage: ONE PILL ONCE DAILY INTRACAVERNOUS
     Dates: start: 20070721, end: 20070728
  2. YAZ [Suspect]
     Indication: LIBIDO DECREASED
     Dosage: ONE PILL ONCE DAILY INTRACAVERNOUS
     Dates: start: 20070721, end: 20070728

REACTIONS (8)
  - ACTIVITIES OF DAILY LIVING IMPAIRED [None]
  - AGITATION [None]
  - ANXIETY [None]
  - DEPRESSION [None]
  - MENTAL DISORDER [None]
  - MORBID THOUGHTS [None]
  - PSYCHOTIC DISORDER [None]
  - SUICIDAL IDEATION [None]
